FAERS Safety Report 4919319-0 (Version None)
Quarter: 2006Q1

REPORT INFORMATION
  Report Type: 
  Country: None (occurrence: None)
  Receive Date: 20060216
  Receipt Date: 20060203
  Transmission Date: 20060701
  Serious: Yes (Other)
  Sender: FDA-Public Use
  Company Number: 2006017524

PATIENT
  Age: 75 Year
  Sex: Female

DRUGS (1)
  1. DETROL LA [Suspect]
     Indication: POLLAKIURIA
     Dosage: 4 MG (4 MG, 1 IN 1 D), ORAL
     Route: 048
     Dates: start: 20040101

REACTIONS (6)
  - ANXIETY [None]
  - ARTHRITIS [None]
  - ARTHRITIS BACTERIAL [None]
  - CARDIOMEGALY [None]
  - FLUID RETENTION [None]
  - SLEEP DISORDER [None]
